FAERS Safety Report 4592252-2 (Version None)
Quarter: 2005Q1

REPORT INFORMATION
  Report Type: 
  Country: None (occurrence: None)
  Receive Date: 20050228
  Receipt Date: 20041105
  Transmission Date: 20050727
  Serious: Yes (Hospitalization)
  Sender: FDA-Public Use
  Company Number: US-BRISTOL-MYERS SQUIBB COMPANY-12757514

PATIENT
  Age: 18 Year
  Sex: Female

DRUGS (3)
  1. ABILIFY [Suspect]
     Indication: BIPOLAR DISORDER
     Dosage: REDUCED TO 15 MG/DAY IN NOV-2004.
     Route: 048
     Dates: start: 20031001
  2. CONCERTA [Suspect]
     Route: 048
  3. LEXAPRO [Concomitant]
     Route: 048

REACTIONS (1)
  - THROMBOCYTOPENIA [None]
